FAERS Safety Report 12321692 (Version 1)
Quarter: 2016Q2

REPORT INFORMATION
  Report Type: Spontaneous
  Country: US (occurrence: None)
  Receive Date: 20160429
  Receipt Date: 20160429
  Transmission Date: 20160815
  Serious: Yes (Other)
  Sender: FDA-Public Use
  Company Number: None

PATIENT
  Age: 47 Year
  Sex: Male
  Weight: 90.72 kg

DRUGS (9)
  1. OXYCODODE [Concomitant]
  2. ACETAMINOPHEN. [Concomitant]
     Active Substance: ACETAMINOPHEN
  3. CURCURMIN [Concomitant]
  4. TART CHERRY [Concomitant]
  5. KETAMINE CAPSULE 100 MG, 100 MG TOWN PHARMACY [Suspect]
     Active Substance: KETAMINE
     Indication: NEUROPATHY PERIPHERAL
     Dosage: 60CAPSULE (S)
     Route: 048
     Dates: start: 20140416, end: 20160428
  6. MORPHINE [Concomitant]
     Active Substance: MORPHINE
  7. IODINE. [Concomitant]
     Active Substance: IODINE
  8. KETAMINE CAPSULE 100 MG, 100 MG TOWN PHARMACY [Suspect]
     Active Substance: KETAMINE
     Indication: TRIGEMINAL NEURALGIA
     Dosage: 60CAPSULE (S)
     Route: 048
     Dates: start: 20140416, end: 20160428
  9. DICLOFENAC [Concomitant]
     Active Substance: DICLOFENAC

REACTIONS (1)
  - Gout [None]

NARRATIVE: CASE EVENT DATE: 20160427
